FAERS Safety Report 4645824-0 (Version None)
Quarter: 2005Q2

REPORT INFORMATION
  Report Type: 
  Country: None (occurrence: None)
  Receive Date: 20050422
  Receipt Date: 20050422
  Transmission Date: 20051028
  Serious: Yes (Hospitalization)
  Sender: FDA-Public Use
  Company Number: None

PATIENT
  Age: 68 Year
  Sex: Female
  Weight: 53 kg

DRUGS (5)
  1. CAPECITABINE 2000MG/M2 PO 2 DIVIDED DOSES QD [Suspect]
     Indication: PANCREATIC CARCINOMA
     Dosage: PO QD FOR 15 DAYS
     Route: 048
     Dates: start: 20050309, end: 20050412
  2. OXALIPLATIN 130 MG/M2 120 MIN INFUSION [Suspect]
     Indication: PANCREATIC CARCINOMA
     Dosage: IV DAY 1 Q 3 WEEKS
     Route: 042
     Dates: start: 20050309, end: 20050330
  3. OXYCONTIN [Concomitant]
  4. OXYCODONE HCL [Concomitant]
  5. URSODIOL [Concomitant]

REACTIONS (10)
  - ABDOMINAL PAIN [None]
  - ABDOMINAL REBOUND TENDERNESS [None]
  - BLOOD MAGNESIUM DECREASED [None]
  - DELIRIUM [None]
  - DIARRHOEA [None]
  - DRUG TOXICITY [None]
  - INTESTINAL PERFORATION [None]
  - NAUSEA [None]
  - PYREXIA [None]
  - VOMITING [None]
